FAERS Safety Report 12676633 (Version 2)
Quarter: 2016Q3

REPORT INFORMATION
  Report Type: Spontaneous
  Country: JP (occurrence: JP)
  Receive Date: 20160823
  Receipt Date: 20160902
  Transmission Date: 20161109
  Serious: Yes (Hospitalization, Other)
  Sender: FDA-Public Use
  Company Number: JP-SA-2016SA151833

PATIENT
  Age: 66 Year
  Sex: Male

DRUGS (2)
  1. RENAGEL [Suspect]
     Active Substance: SEVELAMER HYDROCHLORIDE
     Indication: HYPERPHOSPHATAEMIA
     Route: 065
  2. KAYEXALATE [Suspect]
     Active Substance: SODIUM POLYSTYRENE SULFONATE
     Indication: HYPERKALAEMIA
     Route: 065

REACTIONS (15)
  - Abdominal pain [Unknown]
  - Crystal deposit intestine [Unknown]
  - C-reactive protein increased [Unknown]
  - Blood creatinine increased [Unknown]
  - Blood urea increased [Unknown]
  - Fat tissue increased [Unknown]
  - Large intestine perforation [Unknown]
  - Pneumoperitoneum [Unknown]
  - White blood cell count increased [Unknown]
  - Abdominal rigidity [Unknown]
  - Inflammation [Unknown]
  - Abdominal distension [Unknown]
  - Tenderness [Unknown]
  - Coma scale abnormal [Unknown]
  - Ascites [Unknown]
